FAERS Safety Report 8367071-1 (Version None)
Quarter: 2012Q2

REPORT INFORMATION
  Report Type: 
  Country: None (occurrence: None)
  Receive Date: 20120517
  Receipt Date: 20120511
  Transmission Date: 20120825
  Serious: Yes (Death)
  Sender: FDA-Public Use
  Company Number: JP-ELI_LILLY_AND_COMPANY-JP201204006168

PATIENT
  Sex: Male
  Weight: 63 kg

DRUGS (12)
  1. PURSENNID [Concomitant]
     Indication: INFLAMMATION
  2. GASCON [Concomitant]
     Indication: FLATULENCE
     Dosage: 240 MG, UNK
     Route: 048
     Dates: start: 20100330
  3. FOLIAMIN [Concomitant]
     Dosage: 1 G, UNK
     Route: 048
     Dates: start: 20100309, end: 20100428
  4. FENTANYL-100 [Concomitant]
     Indication: ANALGESIC THERAPY
     Dosage: 25.2 MG, UNK
     Route: 062
  5. ALIMTA [Suspect]
     Indication: LUNG ADENOCARCINOMA STAGE IV
     Dosage: 500 MG/M2, UNK
     Route: 042
     Dates: start: 20100317, end: 20100428
  6. MUCOSTA [Concomitant]
     Indication: GASTRITIS
     Dosage: 300 MG, UNK
     Route: 048
     Dates: start: 20100101
  7. COLONEL [Concomitant]
     Indication: CONSTIPATION
     Dosage: 3.6 G, UNK
     Route: 048
  8. LOXONIN [Concomitant]
     Indication: ANALGESIC THERAPY
     Dosage: 180 UG, UNK
     Route: 048
     Dates: start: 20100101
  9. PANTOSIN [Concomitant]
     Indication: PANTOTHENIC ACID DEFICIENCY
     Dosage: 300 MG, UNK
     Route: 048
  10. VITAMIN B12 [Concomitant]
     Dosage: 1 MG, UNK
     Route: 030
     Dates: start: 20100309
  11. MAGMITT [Concomitant]
     Indication: CONSTIPATION
     Dosage: 3000 MG, UNK
     Route: 048
     Dates: start: 20100309
  12. OXINORM [Concomitant]
     Indication: ANALGESIC THERAPY
     Dosage: 10 MG, UNK
     Route: 048
     Dates: start: 20100309

REACTIONS (1)
  - INTERSTITIAL LUNG DISEASE [None]
